FAERS Safety Report 25915907 (Version 2)
Quarter: 2025Q4

REPORT INFORMATION
  Report Type: Spontaneous
  Country: US (occurrence: US)
  Receive Date: 20251013
  Receipt Date: 20251111
  Transmission Date: 20260117
  Serious: No
  Sender: JOHNSON AND JOHNSON
  Company Number: US-JNJFOC-20251009303

PATIENT
  Age: 55 Year
  Sex: Female

DRUGS (2)
  1. TREMFYA [Suspect]
     Active Substance: GUSELKUMAB
     Indication: Colitis ulcerative
     Route: 065
     Dates: start: 20250908
  2. TREMFYA [Suspect]
     Active Substance: GUSELKUMAB
     Dosage: MAY-2025,JUN-2025, JUL-2025 WERE MONTHLY INFUSIONS
     Dates: start: 20250512

REACTIONS (1)
  - Injection site bruising [Unknown]
